FAERS Safety Report 6903871-X (Version None)
Quarter: 2010Q3

REPORT INFORMATION
  Report Type: 
  Country: None (occurrence: None)
  Receive Date: 20100804
  Receipt Date: 20090109
  Transmission Date: 20110219
  Serious: No
  Sender: FDA-Public Use
  Company Number: US-PFIZER INC-2009154327

PATIENT
  Sex: Male
  Weight: 95.3 kg

DRUGS (3)
  1. LYRICA [Suspect]
     Indication: EPILEPSY
     Dosage: UNK
     Dates: start: 20070701
  2. KEPPRA [Concomitant]
     Dosage: UNK
  3. PREMARIN [Concomitant]
     Dosage: UNK

REACTIONS (2)
  - EYE PAIN [None]
  - OCULAR HYPERAEMIA [None]
